FAERS Safety Report 6883881-1 (Version None)
Quarter: 2010Q3

REPORT INFORMATION
  Report Type: 
  Country: None (occurrence: None)
  Receive Date: 20100729
  Receipt Date: 20100720
  Transmission Date: 20110219
  Serious: Yes (Hospitalization, Other)
  Sender: FDA-Public Use
  Company Number: US-JNJFOC-20100706701

PATIENT
  Sex: Male
  Weight: 43 kg

DRUGS (6)
  1. INFLIXIMAB, RECOMBINANT [Suspect]
     Indication: CROHN'S DISEASE
     Route: 042
     Dates: start: 20090221, end: 20090928
  2. INFLIXIMAB, RECOMBINANT [Suspect]
     Route: 042
     Dates: start: 20090221, end: 20090928
  3. PREDNISONE [Concomitant]
  4. MERCAPTOPURINE [Concomitant]
  5. METRONIDAZOLE [Concomitant]
  6. PROTONIX [Concomitant]

REACTIONS (1)
  - CROHN'S DISEASE [None]
